FAERS Safety Report 8135505 (Version 4)
Quarter: 2019Q1

REPORT INFORMATION
  Report Type: Spontaneous
  Country: FR (occurrence: FR)
  Receive Date: 20110914
  Receipt Date: 20190205
  Transmission Date: 20190418
  Serious: Yes (Other)
  Sender: FDA-Public Use
  Company Number: FR-ROCHE-801556

PATIENT
  Age: 46 Year
  Sex: Female

DRUGS (6)
  1. AVASTIN [Suspect]
     Active Substance: BEVACIZUMAB
     Indication: BREAST CANCER
     Route: 042
  2. AVASTIN [Suspect]
     Active Substance: BEVACIZUMAB
     Route: 042
  3. TAXOL [Concomitant]
     Active Substance: PACLITAXEL
     Dosage: SECOND CYCLE
     Route: 065
  4. TAXOTERE [Suspect]
     Active Substance: DOCETAXEL
     Route: 042
     Dates: start: 20110722, end: 20110722
  5. TAXOL [Concomitant]
     Active Substance: PACLITAXEL
     Route: 065
  6. TAXOTERE [Suspect]
     Active Substance: DOCETAXEL
     Indication: BREAST CANCER
     Route: 042
     Dates: start: 20110624, end: 20110624

REACTIONS (2)
  - Mouth ulceration [Unknown]
  - Periodontal disease [Recovered/Resolved with Sequelae]

NARRATIVE: CASE EVENT DATE: 20110725
